FAERS Safety Report 6943995-4 (Version None)
Quarter: 2010Q3

REPORT INFORMATION
  Report Type: 
  Country: None (occurrence: None)
  Receive Date: 20100827
  Receipt Date: 20100824
  Transmission Date: 20110219
  Serious: Yes (Hospitalization)
  Sender: FDA-Public Use
  Company Number: US-ASTRAZENECA-2007UW27746

PATIENT
  Age: 42 Year
  Sex: Female
  Weight: 104.3 kg

DRUGS (17)
  1. SEROQUEL [Suspect]
     Indication: BIPOLAR DISORDER
     Route: 048
     Dates: start: 20000101, end: 20071201
  2. SEROQUEL [Suspect]
     Indication: DEPRESSION
     Route: 048
     Dates: start: 20000101, end: 20071201
  3. SEROQUEL [Suspect]
     Indication: ANXIETY
     Route: 048
     Dates: start: 20000101, end: 20071201
  4. SEROQUEL [Suspect]
     Dosage: 100 - 400 MG
     Route: 048
     Dates: start: 20041210
  5. SEROQUEL [Suspect]
     Dosage: 100 - 400 MG
     Route: 048
     Dates: start: 20041210
  6. SEROQUEL [Suspect]
     Dosage: 100 - 400 MG
     Route: 048
     Dates: start: 20041210
  7. SEROQUEL [Suspect]
     Dosage: 50 - 400 MG
     Route: 048
     Dates: start: 20050217, end: 20060920
  8. SEROQUEL [Suspect]
     Dosage: 50 - 400 MG
     Route: 048
     Dates: start: 20050217, end: 20060920
  9. SEROQUEL [Suspect]
     Dosage: 50 - 400 MG
     Route: 048
     Dates: start: 20050217, end: 20060920
  10. SEROQUEL [Suspect]
     Dosage: 50 - 400 MG
     Route: 048
     Dates: start: 20060920
  11. SEROQUEL [Suspect]
     Dosage: 50 - 400 MG
     Route: 048
     Dates: start: 20060920
  12. SEROQUEL [Suspect]
     Dosage: 50 - 400 MG
     Route: 048
     Dates: start: 20060920
  13. EFFEXOR [Concomitant]
     Dosage: 300 MG TO 450 MG
     Route: 048
     Dates: start: 20041210
  14. XANAX [Concomitant]
     Dosage: 0.5 MG TO 1 MG
     Route: 048
     Dates: start: 20041210
  15. TRAZODONE HCL [Concomitant]
     Route: 048
     Dates: start: 20041210
  16. LASIX [Concomitant]
     Route: 048
     Dates: start: 20061108
  17. GLUCOPHAGE [Concomitant]
     Route: 048
     Dates: start: 20061108

REACTIONS (4)
  - ARTHRITIS [None]
  - BACK DISORDER [None]
  - KNEE ARTHROPLASTY [None]
  - TYPE 2 DIABETES MELLITUS [None]
